FAERS Safety Report 25327764 (Version 2)
Quarter: 2025Q2

REPORT INFORMATION
  Report Type: Report from Study
  Country: CA (occurrence: CA)
  Receive Date: 20250518
  Receipt Date: 20250614
  Transmission Date: 20250716
  Serious: Yes (Other)
  Sender: JOHNSON AND JOHNSON
  Company Number: CA-JNJFOC-20250242713

PATIENT
  Age: 69 Year
  Sex: Male

DRUGS (3)
  1. STELARA [Suspect]
     Active Substance: USTEKINUMAB
     Indication: Crohn^s disease
     Dosage: EXP:JN/2027
     Route: 058
     Dates: start: 20201208
  2. STELARA [Suspect]
     Active Substance: USTEKINUMAB
     Route: 058
     Dates: start: 20201208
  3. STELARA [Suspect]
     Active Substance: USTEKINUMAB
     Dosage: EXP:JN/2027
     Route: 058
     Dates: start: 20201208

REACTIONS (6)
  - Haematochezia [Recovered/Resolved]
  - Precancerous cells present [Not Recovered/Not Resolved]
  - Off label use [Unknown]
  - Diarrhoea [Not Recovered/Not Resolved]
  - Abdominal pain [Not Recovered/Not Resolved]
  - Asthma [Unknown]

NARRATIVE: CASE EVENT DATE: 20201208
